FAERS Safety Report 22195088 (Version 1)
Quarter: 2023Q2

REPORT INFORMATION
  Report Type: Other
  Country: ES (occurrence: ES)
  Receive Date: 20230411
  Receipt Date: 20230411
  Transmission Date: 20230721
  Serious: Yes (Life-Threatening, Hospitalization)
  Sender: FDA-Public Use
  Company Number: ES-DENTSPLY-2023SCDP000105

PATIENT
  Age: 37 Year
  Sex: Male

DRUGS (1)
  1. LIDOCAINE\PRILOCAINE [Suspect]
     Active Substance: LIDOCAINE\PRILOCAINE
     Indication: Product used for unknown indication
     Dosage: UNK DOSE OF EMLA 25 MG/G + 25 MG/G CREAM (1 TUBE OF 30 G)
     Route: 061
     Dates: start: 20230322

REACTIONS (2)
  - Medication error [Recovered/Resolved]
  - Methaemoglobinaemia [Recovered/Resolved]

NARRATIVE: CASE EVENT DATE: 20230322
